FAERS Safety Report 9474524 (Version 2)
Quarter: 2013Q3

REPORT INFORMATION
  Report Type: Spontaneous
  Country: US (occurrence: US)
  Receive Date: 20130823
  Receipt Date: 20130904
  Transmission Date: 20140515
  Serious: Yes (Other)
  Sender: FDA-Public Use
  Company Number: US-BAXTER-2013BAX031794

PATIENT
  Sex: Female

DRUGS (2)
  1. DIANEAL LOW CALCIUM [Suspect]
     Indication: PERITONEAL DIALYSIS
     Route: 033
     Dates: start: 201106
  2. INSULIN [Concomitant]
     Indication: DIABETES MELLITUS
     Route: 065

REACTIONS (4)
  - Iris disorder [Unknown]
  - Blood pressure abnormal [Unknown]
  - Diabetes mellitus inadequate control [Recovered/Resolved]
  - Hypertension [Unknown]
